FAERS Safety Report 9615111 (Version 1)
Quarter: 2013Q4

REPORT INFORMATION
  Report Type: Spontaneous
  Country: IN (occurrence: IN)
  Receive Date: 20131011
  Receipt Date: 20131011
  Transmission Date: 20140711
  Serious: Yes (Other)
  Sender: FDA-Public Use
  Company Number: IN-ROCHE-1287678

PATIENT
  Age: 4 Month
  Sex: Male

DRUGS (4)
  1. RITUXIMAB [Suspect]
     Indication: AUTOIMMUNE HAEMOLYTIC ANAEMIA
     Route: 042
  2. RITUXIMAB [Suspect]
     Route: 042
  3. METHYLPREDNISOLONE [Concomitant]
     Route: 065
  4. PREDNISOLONE [Concomitant]
     Route: 065

REACTIONS (1)
  - Pneumocystis jirovecii pneumonia [Unknown]
